FAERS Safety Report 15355059 (Version 1)
Quarter: 2018Q3

REPORT INFORMATION
  Report Type: Spontaneous
  Country: US (occurrence: US)
  Receive Date: 20180906
  Receipt Date: 20180906
  Transmission Date: 20181010
  Serious: No
  Sender: FDA-Public Use
  Company Number: US-PFIZER INC-2018354083

PATIENT
  Sex: Female
  Weight: 79.83 kg

DRUGS (2)
  1. PREMARIN [Suspect]
     Active Substance: ESTROGENS, CONJUGATED
     Indication: HOT FLUSH
     Dosage: 0.625MG, TABLET, ONCE A DAY IN MORNING
     Route: 048
  2. PREMARIN [Suspect]
     Active Substance: ESTROGENS, CONJUGATED
     Indication: INSOMNIA

REACTIONS (2)
  - Therapeutic response unexpected [Unknown]
  - Pre-existing condition improved [Unknown]
